FAERS Safety Report 24136794 (Version 1)
Quarter: 2024Q3

REPORT INFORMATION
  Report Type: Other
  Country: US (occurrence: US)
  Receive Date: 20240725
  Receipt Date: 20240725
  Transmission Date: 20241017
  Serious: Yes (Death, Other)
  Sender: APPCO PHARMA
  Company Number: US-Appco Pharma LLC-2159591

PATIENT
  Age: 64 Year
  Sex: Male

DRUGS (2)
  1. BACLOFEN [Suspect]
     Active Substance: BACLOFEN
     Indication: Product used for unknown indication
     Route: 065
  2. CLONAZEPAM [Suspect]
     Active Substance: CLONAZEPAM
     Route: 065

REACTIONS (4)
  - Respiratory depression [Fatal]
  - Tremor [Fatal]
  - Clonus [Fatal]
  - Hyperreflexia [Fatal]
